FAERS Safety Report 6677521-4 (Version None)
Quarter: 2010Q2

REPORT INFORMATION
  Report Type: 
  Country: None (occurrence: None)
  Receive Date: 20100412
  Receipt Date: 20100119
  Transmission Date: 20101027
  Serious: No
  Sender: FDA-Public Use
  Company Number: US-ALEXION-A201000061

PATIENT
  Sex: Female

DRUGS (8)
  1. SOLIRIS [Suspect]
     Dosage: UNK
     Route: 042
  2. TYLENOL (CAPLET) [Concomitant]
     Dosage: UNK
     Route: 048
  3. MOTRIN [Concomitant]
     Dosage: UNK
     Route: 048
  4. SYNTHROID [Concomitant]
     Dosage: 50 UG, QD
     Route: 048
  5. GABAPENTIN [Concomitant]
     Indication: NEUROPATHY PERIPHERAL
     Dosage: 400 MG, TID
     Route: 048
  6. TRAMADOL HCL [Concomitant]
     Indication: PAIN
     Dosage: 50 MG, PRN
     Route: 048
  7. BUPROPION [Concomitant]
     Dosage: UNK
     Route: 048
  8. PROCHLORPERAZINE [Concomitant]
     Indication: NAUSEA
     Dosage: UNK
     Route: 048

REACTIONS (3)
  - HEADACHE [None]
  - MUSCULAR WEAKNESS [None]
  - PAIN [None]
